FAERS Safety Report 17818825 (Version 1)
Quarter: 2020Q2

REPORT INFORMATION
  Report Type: Report from Study
  Country: DE (occurrence: DE)
  Receive Date: 20200522
  Receipt Date: 20200522
  Transmission Date: 20200714
  Serious: Yes (Life-Threatening)
  Sender: FDA-Public Use
  Company Number: DE-AMGEN-DEUNI2020081695

PATIENT
  Age: 67 Year
  Sex: Female
  Weight: 58 kg

DRUGS (11)
  1. FLUOROURACIL. [Suspect]
     Active Substance: FLUOROURACIL
     Dosage: 1895 MILLIGRAM
     Route: 042
     Dates: start: 20200428
  2. RAMIPRIL-RATIOPHARM [Concomitant]
     Indication: HYPERTENSION
     Dosage: 2.5 MILLIGRAM, QD
     Route: 048
     Dates: start: 2019
  3. PANITUMUMAB [Suspect]
     Active Substance: PANITUMUMAB
     Indication: COLORECTAL CANCER METASTATIC
     Dosage: 342 MILLIGRAM
     Route: 042
     Dates: start: 20200414
  4. FOLINIC ACID [Suspect]
     Active Substance: LEUCOVORIN
     Indication: COLORECTAL CANCER METASTATIC
     Dosage: 315 MILLIGRAM
     Route: 065
     Dates: start: 20200414
  5. FLUOROURACIL. [Suspect]
     Active Substance: FLUOROURACIL
     Indication: COLORECTAL CANCER METASTATIC
     Dosage: 630 MILLIGRAM
     Route: 040
     Dates: start: 20200414
  6. FLUOROURACIL. [Suspect]
     Active Substance: FLUOROURACIL
     Dosage: 1890 MILLIGRAM
     Route: 042
     Dates: start: 20200414
  7. MINOCYCLIN-RATIOPHARM [Concomitant]
     Indication: PROPHYLAXIS
     Dosage: 50 MILLIGRAM, QD
     Route: 048
     Dates: start: 20200417
  8. OXALIPLATIN. [Suspect]
     Active Substance: OXALIPLATIN
     Indication: COLORECTAL CANCER METASTATIC
     Dosage: 135 MILLIGRAM
     Route: 065
     Dates: start: 20200414
  9. BISOPROLOL-RATIOPHARM [Concomitant]
     Active Substance: BISOPROLOL
     Indication: HYPERTENSION
     Dosage: 2.5 MILLIGRAM, BID
     Route: 048
     Dates: start: 202003
  10. PANITUMUMAB [Suspect]
     Active Substance: PANITUMUMAB
     Dosage: 340 MILLIGRAM
     Route: 042
     Dates: start: 20200428
  11. OXALIPLATIN. [Suspect]
     Active Substance: OXALIPLATIN
     Dosage: 134 MILLIGRAM
     Route: 065
     Dates: start: 20200428

REACTIONS (1)
  - Neutrophil count decreased [Recovering/Resolving]

NARRATIVE: CASE EVENT DATE: 20200512
